FAERS Safety Report 14018642 (Version 1)
Quarter: 2017Q3

REPORT INFORMATION
  Report Type: Spontaneous
  Country: US (occurrence: US)
  Receive Date: 20170928
  Receipt Date: 20170928
  Transmission Date: 20171128
  Serious: No
  Sender: FDA-Public Use
  Company Number: US-009507513-1709USA013708

PATIENT
  Age: 86 Year
  Sex: Male

DRUGS (12)
  1. ASPIRIN. [Concomitant]
     Active Substance: ASPIRIN
  2. GLUCOSAMINE [Concomitant]
     Active Substance: GLUCOSAMINE
  3. ALLOPURINOL. [Concomitant]
     Active Substance: ALLOPURINOL
  4. ZOCOR [Suspect]
     Active Substance: SIMVASTATIN
     Indication: PRODUCT USED FOR UNKNOWN INDICATION
     Dosage: 20 MG, QD
     Route: 048
  5. PRINIVIL [Suspect]
     Active Substance: LISINOPRIL
     Indication: PRODUCT USED FOR UNKNOWN INDICATION
     Dosage: 5 MG, BID
     Route: 048
  6. ELIGARD [Suspect]
     Active Substance: LEUPROLIDE ACETATE
     Indication: PRODUCT USED FOR UNKNOWN INDICATION
     Dosage: UNK(EVERY 6 MONTHS)
  7. METOPROLOL. [Suspect]
     Active Substance: METOPROLOL
     Indication: PRODUCT USED FOR UNKNOWN INDICATION
     Dosage: 25 MG, BID
  8. CALCIUM CITRATE (+) VITAMIN D (UNSPECIFIED) [Concomitant]
     Active Substance: CALCIUM CITRATE\VITAMIN D
  9. LORATADINE. [Concomitant]
     Active Substance: LORATADINE
  10. XANTHOPHYLL [Concomitant]
  11. ZOMETA [Suspect]
     Active Substance: ZOLEDRONIC ACID
     Indication: PRODUCT USED FOR UNKNOWN INDICATION
     Dosage: UNK(EVERY 3 MONTHS)
  12. XTANDI [Suspect]
     Active Substance: ENZALUTAMIDE
     Indication: PROSTATE CANCER
     Dosage: 160 MG, QD
     Route: 048
     Dates: start: 20170211

REACTIONS (3)
  - Dizziness [Not Recovered/Not Resolved]
  - Constipation [Not Recovered/Not Resolved]
  - Fatigue [Unknown]

NARRATIVE: CASE EVENT DATE: 20170706
